FAERS Safety Report 6425625-3 (Version None)
Quarter: 2009Q4

REPORT INFORMATION
  Report Type: 
  Country: None (occurrence: None)
  Receive Date: 20091103
  Receipt Date: 20091026
  Transmission Date: 20100525
  Serious: No
  Sender: FDA-Public Use
  Company Number: US-B.I. PHARMACEUTICALS,INC./RIDGEFIELD-2009-BP-12726BP

PATIENT
  Sex: Male

DRUGS (5)
  1. SPIRIVA [Suspect]
     Indication: CHRONIC OBSTRUCTIVE PULMONARY DISEASE
     Dosage: 18 MCG
     Route: 055
     Dates: start: 20070101
  2. LISINOPRIL [Concomitant]
     Indication: HYPERTENSION
  3. COUMADIN [Concomitant]
     Indication: PROPHYLAXIS
  4. TERAZOSIN HCL [Concomitant]
     Indication: PROPHYLAXIS
  5. TERAZOSIN HCL [Concomitant]
     Indication: HYPERTENSION

REACTIONS (2)
  - DIABETES MELLITUS [None]
  - RENAL DISORDER [None]
